FAERS Safety Report 8348562-6 (Version None)
Quarter: 2012Q2

REPORT INFORMATION
  Report Type: 
  Country: None (occurrence: None)
  Receive Date: 20120509
  Receipt Date: 20120430
  Transmission Date: 20120825
  Serious: Yes (Death)
  Sender: FDA-Public Use
  Company Number: IT-BRISTOL-MYERS SQUIBB COMPANY-16575508

PATIENT
  Age: 83 Year
  Sex: Female

DRUGS (5)
  1. TICLOPIDINE HCL [Concomitant]
  2. ENALAPRIL MALEATE [Concomitant]
  3. STEROIDS [Concomitant]
     Dosage: INHALATION POWDER
  4. METFORMIN HCL [Suspect]
     Indication: DIABETES MELLITUS
  5. CONTRAST AGENT [Suspect]

REACTIONS (4)
  - LACTIC ACIDOSIS [None]
  - NEPHROPATHY TOXIC [None]
  - SEPSIS [None]
  - LOBAR PNEUMONIA [None]
